FAERS Safety Report 8182372-8 (Version None)
Quarter: 2012Q1

REPORT INFORMATION
  Report Type: 
  Country: None (occurrence: None)
  Receive Date: 20120303
  Receipt Date: 20120224
  Transmission Date: 20120608
  Serious: Yes (Hospitalization)
  Sender: FDA-Public Use
  Company Number: PHHY2012CZ016584

PATIENT
  Sex: Female

DRUGS (3)
  1. OROFAR [Concomitant]
  2. PENICILLIN V [Suspect]
     Indication: PHARYNGITIS STREPTOCOCCAL
     Dosage: 500000 IU, QD
     Dates: start: 20120128, end: 20120204
  3. MUCOSOLVAN [Concomitant]

REACTIONS (2)
  - OEDEMA PERIPHERAL [None]
  - URTICARIA [None]
